FAERS Safety Report 9670473 (Version 1)
Quarter: 2013Q4

REPORT INFORMATION
  Report Type: Spontaneous
  Country: CH (occurrence: CH)
  Receive Date: 20131106
  Receipt Date: 20131106
  Transmission Date: 20140711
  Serious: Yes (Hospitalization)
  Sender: FDA-Public Use
  Company Number: CH-JNJFOC-20131014265

PATIENT
  Age: 30 Year
  Sex: Male

DRUGS (3)
  1. NICORETTE [Suspect]
     Indication: SELF INJURIOUS BEHAVIOUR
     Route: 055
     Dates: start: 20131008, end: 20131008
  2. NICOTINELL (NICOTINE) [Suspect]
     Indication: SELF INJURIOUS BEHAVIOUR
     Route: 048
     Dates: start: 20131008, end: 20131008
  3. SINTROM [Concomitant]
     Indication: PRODUCT USED FOR UNKNOWN INDICATION
     Route: 065

REACTIONS (2)
  - Suicide attempt [Unknown]
  - Intentional overdose [Recovered/Resolved]
